FAERS Safety Report 19356782 (Version 1)
Quarter: 2021Q2

REPORT INFORMATION
  Report Type: Spontaneous
  Country: US (occurrence: US)
  Receive Date: 20210602
  Receipt Date: 20210602
  Transmission Date: 20210717
  Serious: No
  Sender: FDA-Public Use
  Company Number: None

PATIENT
  Age: 71 Year
  Sex: Male
  Weight: 125.19 kg

DRUGS (1)
  1. TOCILIZUMAB (TOCILIZUMAB 162MG/0.9ML AUTOINJECTOR) [Suspect]
     Active Substance: TOCILIZUMAB
     Indication: ARTHRITIS
     Route: 058
     Dates: end: 20201003

REACTIONS (4)
  - Pruritus [None]
  - Swelling [None]
  - Urticaria [None]
  - Angioedema [None]

NARRATIVE: CASE EVENT DATE: 20201003
